FAERS Safety Report 4814406-X (Version None)
Quarter: 2005Q4

REPORT INFORMATION
  Report Type: 
  Country: None (occurrence: None)
  Receive Date: 20051027
  Receipt Date: 20051027
  Transmission Date: 20060501
  Serious: No
  Sender: FDA-Public Use
  Company Number: None

PATIENT
  Age: 61 Year
  Sex: Female
  Weight: 118.6 kg

DRUGS (12)
  1. COLISTIN [Suspect]
     Indication: PATHOGEN RESISTANCE
     Dosage: 150MG  Q12HRS IV
     Route: 042
     Dates: start: 20050708, end: 20050718
  2. COLISTIN [Suspect]
     Indication: PSEUDOMONAS INFECTION
     Dosage: 150MG  Q12HRS IV
     Route: 042
     Dates: start: 20050708, end: 20050718
  3. PYRIDOSTIGMINE BROMIDE [Concomitant]
  4. CLONIDINE [Concomitant]
  5. INSULIN [Concomitant]
  6. ARANESP [Concomitant]
  7. ENALAPRIL [Concomitant]
  8. NEXIUM [Concomitant]
  9. FERROUS SULFATE TAB [Concomitant]
  10. POTASSIUM CHLORIDE [Concomitant]
  11. HEPARIN [Concomitant]
  12. DUONEB [Concomitant]

REACTIONS (1)
  - BLOOD CREATININE INCREASED [None]
